FAERS Safety Report 16349443 (Version 2)
Quarter: 2019Q2

REPORT INFORMATION
  Report Type: Report from Study
  Country: US (occurrence: US)
  Receive Date: 20190523
  Receipt Date: 20190614
  Transmission Date: 20190711
  Serious: Yes (Hospitalization)
  Sender: FDA-Public Use
  Company Number: US-ACTELION-A-NJ2019-187606

PATIENT
  Age: 73 Year
  Sex: Male
  Weight: 87.08 kg

DRUGS (3)
  1. OPSUMIT [Suspect]
     Active Substance: MACITENTAN
     Indication: PULMONARY HYPERTENSION
     Dosage: 10 MG, QD
     Route: 048
     Dates: start: 20190204, end: 201905
  2. AMLODIPINE [Concomitant]
     Active Substance: AMLODIPINE BESYLATE
  3. SILDENAFIL CITRATE. [Concomitant]
     Active Substance: SILDENAFIL CITRATE

REACTIONS (13)
  - Gait disturbance [Recovering/Resolving]
  - Generalised oedema [Unknown]
  - Nasopharyngitis [Not Recovered/Not Resolved]
  - Dyspnoea [Recovering/Resolving]
  - Skin ulcer [Unknown]
  - Influenza [Unknown]
  - Pleural effusion [Recovering/Resolving]
  - Fluid retention [Recovering/Resolving]
  - Weight increased [Recovering/Resolving]
  - Scrotal swelling [Unknown]
  - Balance disorder [Not Recovered/Not Resolved]
  - Lower respiratory tract infection [Not Recovered/Not Resolved]
  - Pericardial effusion [Recovering/Resolving]

NARRATIVE: CASE EVENT DATE: 201903
